FAERS Safety Report 19590816 (Version 2)
Quarter: 2021Q3

REPORT INFORMATION
  Report Type: Spontaneous
  Country: US (occurrence: US)
  Receive Date: 20210721
  Receipt Date: 20210729
  Transmission Date: 20211014
  Serious: Yes (Other)
  Sender: FDA-Public Use
  Company Number: US-ASTRAZENECA-2021A629733

PATIENT
  Sex: Female
  Weight: 89.8 kg

DRUGS (1)
  1. FASLODEX [Suspect]
     Active Substance: FULVESTRANT
     Indication: BLOOD OESTROGEN ABNORMAL
     Route: 030
     Dates: start: 202103

REACTIONS (4)
  - Intentional product misuse [Unknown]
  - Pain in extremity [Unknown]
  - Sciatic nerve injury [Unknown]
  - Injection site pain [Unknown]
